FAERS Safety Report 21908540 (Version 17)
Quarter: 2025Q3

REPORT INFORMATION
  Report Type: Spontaneous
  Country: CA (occurrence: CA)
  Receive Date: 20230125
  Receipt Date: 20250924
  Transmission Date: 20251021
  Serious: Yes (Hospitalization, Other)
  Sender: MYLAN
  Company Number: CA-MYLANLABS-2021404858

PATIENT
  Age: 57 Year
  Sex: Female
  Weight: 55.32 kg

DRUGS (64)
  1. REVATIO [Suspect]
     Active Substance: SILDENAFIL CITRATE
     Indication: Pulmonary arterial hypertension
     Dosage: 30 MILLIGRAM, TID (30 MILLIGRAM, 3 TIMES A DAY)
     Route: 048
     Dates: start: 20061214
  2. REVATIO [Suspect]
     Active Substance: SILDENAFIL CITRATE
     Dosage: 30 MILLIGRAM, TID (30 MILLIGRAM, 3 TIMES A DAY)
     Dates: start: 20061214
  3. REVATIO [Suspect]
     Active Substance: SILDENAFIL CITRATE
     Dosage: 30 MILLIGRAM, TID (30 MILLIGRAM, 3 TIMES A DAY)
     Dates: start: 20061214
  4. REVATIO [Suspect]
     Active Substance: SILDENAFIL CITRATE
     Dosage: 30 MILLIGRAM, TID (30 MILLIGRAM, 3 TIMES A DAY)
     Route: 048
     Dates: start: 20061214
  5. REVATIO [Suspect]
     Active Substance: SILDENAFIL CITRATE
     Dosage: 50 MILLIGRAM, TID (THREE TIMES A DAY)
     Route: 048
     Dates: start: 20061214
  6. REVATIO [Suspect]
     Active Substance: SILDENAFIL CITRATE
     Dosage: 50 MILLIGRAM, TID (THREE TIMES A DAY)
     Dates: start: 20061214
  7. REVATIO [Suspect]
     Active Substance: SILDENAFIL CITRATE
     Dosage: 50 MILLIGRAM, TID (THREE TIMES A DAY)
     Dates: start: 20061214
  8. REVATIO [Suspect]
     Active Substance: SILDENAFIL CITRATE
     Dosage: 50 MILLIGRAM, TID (THREE TIMES A DAY)
     Route: 048
     Dates: start: 20061214
  9. ALDACTONE [Concomitant]
     Active Substance: SPIRONOLACTONE
  10. ALDACTONE [Concomitant]
     Active Substance: SPIRONOLACTONE
     Route: 065
  11. ALDACTONE [Concomitant]
     Active Substance: SPIRONOLACTONE
     Route: 065
  12. ALDACTONE [Concomitant]
     Active Substance: SPIRONOLACTONE
  13. BOSENTAN [Concomitant]
     Active Substance: BOSENTAN
  14. BOSENTAN [Concomitant]
     Active Substance: BOSENTAN
     Route: 065
  15. BOSENTAN [Concomitant]
     Active Substance: BOSENTAN
     Route: 065
  16. BOSENTAN [Concomitant]
     Active Substance: BOSENTAN
  17. EPOPROSTENOL [Concomitant]
     Active Substance: EPOPROSTENOL
  18. EPOPROSTENOL [Concomitant]
     Active Substance: EPOPROSTENOL
     Route: 065
  19. EPOPROSTENOL [Concomitant]
     Active Substance: EPOPROSTENOL
     Route: 065
  20. EPOPROSTENOL [Concomitant]
     Active Substance: EPOPROSTENOL
  21. FOLIC ACID [Concomitant]
     Active Substance: FOLIC ACID
  22. FOLIC ACID [Concomitant]
     Active Substance: FOLIC ACID
     Route: 065
  23. FOLIC ACID [Concomitant]
     Active Substance: FOLIC ACID
     Route: 065
  24. FOLIC ACID [Concomitant]
     Active Substance: FOLIC ACID
  25. IRON [Concomitant]
     Active Substance: IRON
  26. IRON [Concomitant]
     Active Substance: IRON
     Route: 065
  27. IRON [Concomitant]
     Active Substance: IRON
     Route: 065
  28. IRON [Concomitant]
     Active Substance: IRON
  29. METHOTREXATE [Concomitant]
     Active Substance: METHOTREXATE
  30. METHOTREXATE [Concomitant]
     Active Substance: METHOTREXATE
     Route: 065
  31. METHOTREXATE [Concomitant]
     Active Substance: METHOTREXATE
     Route: 065
  32. METHOTREXATE [Concomitant]
     Active Substance: METHOTREXATE
  33. ONDANSETRON [Concomitant]
     Active Substance: ONDANSETRON
  34. ONDANSETRON [Concomitant]
     Active Substance: ONDANSETRON
     Route: 065
  35. ONDANSETRON [Concomitant]
     Active Substance: ONDANSETRON
     Route: 065
  36. ONDANSETRON [Concomitant]
     Active Substance: ONDANSETRON
  37. PLAQUENIL [Concomitant]
     Active Substance: HYDROXYCHLOROQUINE SULFATE
  38. PLAQUENIL [Concomitant]
     Active Substance: HYDROXYCHLOROQUINE SULFATE
     Route: 065
  39. PLAQUENIL [Concomitant]
     Active Substance: HYDROXYCHLOROQUINE SULFATE
     Route: 065
  40. PLAQUENIL [Concomitant]
     Active Substance: HYDROXYCHLOROQUINE SULFATE
  41. PANTOPRAZOLE SODIUM [Concomitant]
     Active Substance: PANTOPRAZOLE SODIUM
  42. PANTOPRAZOLE SODIUM [Concomitant]
     Active Substance: PANTOPRAZOLE SODIUM
     Route: 065
  43. PANTOPRAZOLE SODIUM [Concomitant]
     Active Substance: PANTOPRAZOLE SODIUM
     Route: 065
  44. PANTOPRAZOLE SODIUM [Concomitant]
     Active Substance: PANTOPRAZOLE SODIUM
  45. PREDNISONE [Concomitant]
     Active Substance: PREDNISONE
  46. PREDNISONE [Concomitant]
     Active Substance: PREDNISONE
     Route: 065
  47. PREDNISONE [Concomitant]
     Active Substance: PREDNISONE
     Route: 065
  48. PREDNISONE [Concomitant]
     Active Substance: PREDNISONE
  49. WARFARIN [Concomitant]
     Active Substance: WARFARIN
  50. WARFARIN [Concomitant]
     Active Substance: WARFARIN
     Route: 065
  51. WARFARIN [Concomitant]
     Active Substance: WARFARIN
     Route: 065
  52. WARFARIN [Concomitant]
     Active Substance: WARFARIN
  53. OPSUMIT [Concomitant]
     Active Substance: MACITENTAN
  54. OPSUMIT [Concomitant]
     Active Substance: MACITENTAN
     Route: 065
  55. OPSUMIT [Concomitant]
     Active Substance: MACITENTAN
     Route: 065
  56. OPSUMIT [Concomitant]
     Active Substance: MACITENTAN
  57. EPOPROSTENOL [Concomitant]
     Active Substance: EPOPROSTENOL
  58. EPOPROSTENOL [Concomitant]
     Active Substance: EPOPROSTENOL
     Route: 065
  59. EPOPROSTENOL [Concomitant]
     Active Substance: EPOPROSTENOL
     Route: 065
  60. EPOPROSTENOL [Concomitant]
     Active Substance: EPOPROSTENOL
  61. AMBRISENTAN [Concomitant]
     Active Substance: AMBRISENTAN
     Dosage: 10 MILLIGRAM, QD (DAILY)
  62. AMBRISENTAN [Concomitant]
     Active Substance: AMBRISENTAN
     Dosage: 10 MILLIGRAM, QD (DAILY)
     Route: 065
  63. AMBRISENTAN [Concomitant]
     Active Substance: AMBRISENTAN
     Dosage: 10 MILLIGRAM, QD (DAILY)
     Route: 065
  64. AMBRISENTAN [Concomitant]
     Active Substance: AMBRISENTAN
     Dosage: 10 MILLIGRAM, QD (DAILY)

REACTIONS (15)
  - Respiratory syncytial virus infection [Not Recovered/Not Resolved]
  - Adverse event [Unknown]
  - COVID-19 [Unknown]
  - Nasopharyngitis [Unknown]
  - Haemoglobin decreased [Unknown]
  - Pneumonia viral [Not Recovered/Not Resolved]
  - Hospitalisation [Unknown]
  - Cardiac failure [Unknown]
  - Poisoning [Not Recovered/Not Resolved]
  - Feeling abnormal [Unknown]
  - Malaise [Unknown]
  - Dyspnoea [Unknown]
  - Right ventricular dilatation [Unknown]
  - General physical health deterioration [Unknown]
  - Off label use [Unknown]

NARRATIVE: CASE EVENT DATE: 20061214
